FAERS Safety Report 11350800 (Version 1)
Quarter: 2015Q3

REPORT INFORMATION
  Report Type: Spontaneous
  Country: US (occurrence: US)
  Receive Date: 20150807
  Receipt Date: 20150807
  Transmission Date: 20151125
  Serious: No
  Sender: FDA-Public Use
  Company Number: US-JNJFOC-20150213243

PATIENT
  Age: 26 Year
  Sex: Male
  Weight: 78.02 kg

DRUGS (2)
  1. MENS ROGAINE EXTRA STRENGTH [Suspect]
     Active Substance: MINOXIDIL
     Indication: ALOPECIA
     Dosage: ABOUT THE SIZE OF A PALM OR HAND
     Route: 061
  2. MENS ROGAINE EXTRA STRENGTH [Suspect]
     Active Substance: MINOXIDIL
     Indication: ALOPECIA
     Dosage: ABOUT THE SIZE OF A PALM OR HAND
     Route: 061

REACTIONS (5)
  - Pruritus [Recovering/Resolving]
  - Blister [Recovering/Resolving]
  - Product quality issue [Unknown]
  - Product odour abnormal [Unknown]
  - Erythema [Recovering/Resolving]
